FAERS Safety Report 9275243 (Version 1)
Quarter: 2013Q2

REPORT INFORMATION
  Report Type: Spontaneous
  Country: PE (occurrence: PE)
  Receive Date: 20130507
  Receipt Date: 20130507
  Transmission Date: 20140414
  Serious: Yes (Other)
  Sender: FDA-Public Use
  Company Number: PE-PFIZER INC-2013136132

PATIENT
  Age: 96 Year
  Sex: Male

DRUGS (2)
  1. VIAGRA [Suspect]
     Dosage: 50 MG, UNK
     Route: 048
  2. LIPITOR [Suspect]
     Dosage: 40 MG, UNK
     Route: 048

REACTIONS (1)
  - Cardiac disorder [Unknown]
